FAERS Safety Report 10183877 (Version 2)
Quarter: 2014Q2

REPORT INFORMATION
  Report Type: Spontaneous
  Country: US (occurrence: US)
  Receive Date: 20140520
  Receipt Date: 20140603
  Transmission Date: 20141212
  Serious: Yes (Other)
  Sender: FDA-Public Use
  Company Number: US-PURDUE-USA-2014-0114048

PATIENT
  Sex: Male

DRUGS (1)
  1. BUTRANS [Suspect]
     Indication: NECK PAIN
     Dosage: 10 MCG/HR, WEEKLY
     Route: 062
     Dates: end: 20140515

REACTIONS (3)
  - Neck surgery [Unknown]
  - Drug ineffective [Unknown]
  - Procedural pain [Unknown]
